FAERS Safety Report 4342326-6 (Version None)
Quarter: 2004Q2

REPORT INFORMATION
  Report Type: 
  Country: None (occurrence: None)
  Receive Date: 20040420
  Receipt Date: 20040420
  Transmission Date: 20050107
  Serious: No
  Sender: FDA-Public Use
  Company Number: None

PATIENT
  Age: 17 Month
  Sex: Male
  Weight: 9.5255 kg

DRUGS (4)
  1. GENTAMICIN [Suspect]
     Indication: CYSTIC FIBROSIS
     Dosage: 30 MG IV Q8H
     Route: 042
     Dates: start: 20040114, end: 20040126
  2. CEFEPIME [Suspect]
     Dosage: 400 MG IV Q 8 H
     Route: 042
     Dates: start: 20040114, end: 20040126
  3. CEFEPIME [Suspect]
  4. CEFEPIME [Suspect]

REACTIONS (2)
  - DRUG TOXICITY [None]
  - RENAL TUBULAR NECROSIS [None]
